FAERS Safety Report 7251399-2 (Version None)
Quarter: 2011Q1

REPORT INFORMATION
  Report Type: 
  Country: None (occurrence: None)
  Receive Date: 20110119
  Receipt Date: 20110102
  Transmission Date: 20110831
  Serious: Yes (Death, Hospitalization)
  Sender: FDA-Public Use
  Company Number: COL_04115_2011

PATIENT
  Age: 39 Year
  Sex: Female

DRUGS (2)
  1. COLGATE [Suspect]
     Indication: DENTAL PLAQUE
     Dosage: (NI/NI/ORAL)
     Route: 048
  2. COLGATE [Suspect]
     Indication: GINGIVITIS
     Dosage: (NI/NI/ORAL)
     Route: 048

REACTIONS (2)
  - HYPERSENSITIVITY [None]
  - MALAISE [None]
